FAERS Safety Report 6214215-3 (Version None)
Quarter: 2009Q2

REPORT INFORMATION
  Report Type: 
  Country: None (occurrence: None)
  Receive Date: 20090604
  Receipt Date: 20090527
  Transmission Date: 20091009
  Serious: Yes (Hospitalization, Other)
  Sender: FDA-Public Use
  Company Number: US-ABBOTT-09P-163-0576329-00

PATIENT
  Sex: Female
  Weight: 87.622 kg

DRUGS (5)
  1. HUMIRA [Suspect]
     Indication: PSORIASIS
     Route: 058
     Dates: start: 20040503, end: 20080701
  2. HUMIRA [Suspect]
     Indication: PSORIATIC ARTHROPATHY
  3. TAMIFLU [Suspect]
     Indication: INFLUENZA
     Dates: start: 20070101, end: 20070101
  4. SYNTHROID [Concomitant]
     Indication: THYROIDECTOMY
  5. ZESTRIL [Concomitant]
     Indication: HYPERTENSION

REACTIONS (6)
  - HALLUCINATION [None]
  - INFLUENZA [None]
  - INTERVERTEBRAL DISC PROTRUSION [None]
  - PAIN IN EXTREMITY [None]
  - PNEUMONIA [None]
  - PSORIASIS [None]
